FAERS Safety Report 7046167-0 (Version None)
Quarter: 2010Q4

REPORT INFORMATION
  Report Type: 
  Country: None (occurrence: None)
  Receive Date: 20101014
  Receipt Date: 20101004
  Transmission Date: 20110411
  Serious: Yes (Hospitalization)
  Sender: FDA-Public Use
  Company Number: GB-WYE-H18123710

PATIENT
  Sex: Male

DRUGS (8)
  1. AMIODARONE HCL [Suspect]
     Indication: ARRHYTHMIA
     Route: 048
     Dates: start: 20100901, end: 20100901
  2. AMIODARONE HCL [Suspect]
     Route: 048
     Dates: start: 20100901
  3. DIGOXIN [Concomitant]
  4. WARFARIN SODIUM [Concomitant]
  5. NITROGLYCERIN [Concomitant]
  6. MADOPAR [Concomitant]
  7. ROTIGOTINE [Suspect]
     Route: 062
     Dates: end: 20100923
  8. FUROSEMIDE [Concomitant]

REACTIONS (3)
  - DELUSION [None]
  - DRUG INTERACTION [None]
  - HALLUCINATION [None]
